FAERS Safety Report 8275857-7 (Version None)
Quarter: 2012Q2

REPORT INFORMATION
  Report Type: 
  Country: None (occurrence: None)
  Receive Date: 20120410
  Receipt Date: 20120410
  Transmission Date: 20120825
  Serious: Yes (Other)
  Sender: FDA-Public Use
  Company Number: None

PATIENT
  Age: 28 Year
  Sex: Female
  Weight: 62.3 kg

DRUGS (1)
  1. SPRINTEC [Suspect]
     Indication: ORAL CONTRACEPTION
     Dosage: 0.25MG/0.035MG DAILY ORAL
     Route: 048
     Dates: start: 20120401

REACTIONS (12)
  - HYPOACUSIS [None]
  - ABDOMINAL PAIN UPPER [None]
  - PRESYNCOPE [None]
  - LOSS OF CONSCIOUSNESS [None]
  - SNEEZING [None]
  - HYPERSENSITIVITY [None]
  - FALL [None]
  - EYE PAIN [None]
  - EYE SWELLING [None]
  - ANAPHYLACTIC SHOCK [None]
  - PRURITUS [None]
  - PARAESTHESIA [None]
